FAERS Safety Report 8267823-2 (Version None)
Quarter: 2012Q2

REPORT INFORMATION
  Report Type: 
  Country: None (occurrence: None)
  Receive Date: 20120405
  Receipt Date: 20120405
  Transmission Date: 20120825
  Serious: No
  Sender: FDA-Public Use
  Company Number: None

PATIENT
  Age: 50 Year
  Sex: Male
  Weight: 123.6 kg

DRUGS (1)
  1. MIRTAZAPINE [Suspect]
     Indication: BIPOLAR I DISORDER
     Dosage: 15 MG HS PO
     Route: 048
     Dates: start: 20120203, end: 20120214

REACTIONS (1)
  - BLOOD TRIGLYCERIDES INCREASED [None]
